FAERS Safety Report 5817623-5 (Version None)
Quarter: 2008Q3

REPORT INFORMATION
  Report Type: 
  Country: None (occurrence: None)
  Receive Date: 20080722
  Receipt Date: 20071011
  Transmission Date: 20090109
  Serious: Yes (Disabling)
  Sender: FDA-Public Use
  Company Number: IT-ROCHE-571045

PATIENT
  Age: 45 Year
  Sex: Male

DRUGS (3)
  1. PEGASYS [Suspect]
     Route: 065
  2. PEGASYS [Suspect]
     Dosage: PREVIOUS THERAPY.
     Route: 065
  3. RIBAVIRIN [Suspect]
     Route: 065

REACTIONS (1)
  - NEPHROLITHIASIS [None]
